FAERS Safety Report 6101009-2 (Version None)
Quarter: 2009Q1

REPORT INFORMATION
  Report Type: 
  Country: None (occurrence: None)
  Receive Date: 20090304
  Receipt Date: 20090223
  Transmission Date: 20090719
  Serious: Yes (Other)
  Sender: FDA-Public Use
  Company Number: CA-AMGEN-QUU335368

PATIENT
  Age: 64 Year
  Sex: Male
  Weight: 85 kg

DRUGS (11)
  1. ARANESP [Suspect]
     Indication: DRUG USE FOR UNKNOWN INDICATION
     Route: 058
  2. ALTACE [Concomitant]
     Route: 048
  3. ASCORBIC ACID [Concomitant]
     Route: 048
  4. ELAVIL [Concomitant]
     Route: 048
  5. FLOMAX [Concomitant]
     Route: 048
  6. IRON [Concomitant]
     Route: 048
  7. LASIX [Concomitant]
     Route: 048
  8. NEURONTIN [Concomitant]
     Route: 048
  9. TYLENOL [Concomitant]
     Route: 048
  10. MULTI-VITAMINS [Concomitant]
     Route: 048
  11. VITAMIN E [Concomitant]
     Route: 048

REACTIONS (5)
  - CONFUSIONAL STATE [None]
  - DIZZINESS [None]
  - EXFOLIATIVE RASH [None]
  - LOSS OF CONSCIOUSNESS [None]
  - PRURITUS [None]
